FAERS Safety Report 9572521 (Version 3)
Quarter: 2013Q4

REPORT INFORMATION
  Report Type: Spontaneous
  Country: IT (occurrence: IT)
  Receive Date: 20131001
  Receipt Date: 20131015
  Transmission Date: 20140711
  Serious: Yes (Death, Other)
  Sender: FDA-Public Use
  Company Number: IT-JNJFOC-20130718904

PATIENT
  Age: 43 Year
  Sex: Male

DRUGS (3)
  1. REMICADE [Suspect]
     Indication: GRAFT VERSUS HOST DISEASE
     Route: 042
     Dates: start: 20130606, end: 20130606
  2. URBASON [Suspect]
     Indication: GRAFT VERSUS HOST DISEASE
     Route: 042
     Dates: start: 20130521, end: 20130614
  3. SOLIRIS [Suspect]
     Indication: HAEMOLYTIC URAEMIC SYNDROME
     Dosage: 300 MG STRENGTH
     Route: 042
     Dates: start: 20130601, end: 20130607

REACTIONS (2)
  - Drug ineffective [Fatal]
  - Off label use [Unknown]
